FAERS Safety Report 9164700 (Version 1)
Quarter: 2013Q1

REPORT INFORMATION
  Report Type: Spontaneous
  Country: US (occurrence: None)
  Receive Date: 20130301
  Receipt Date: 20130301
  Transmission Date: 20140127
  Serious: Yes (Other)
  Sender: FDA-Public Use
  Company Number: 2013SUN00190

PATIENT
  Age: 56 None
  Sex: Female

DRUGS (2)
  1. LETROZOLE TABS 2.5MG (LETROZOLE) TABLET, 2.5MG [Suspect]
     Indication: BREAST CANCER
  2. ANASTROZOLE (ANASTROZOLE) [Suspect]
     Indication: BREAST CANCER
     Dates: start: 20110820

REACTIONS (4)
  - Suicidal ideation [None]
  - Pain [None]
  - Depression [None]
  - Hot flush [None]
